FAERS Safety Report 25398938 (Version 1)
Quarter: 2025Q2

REPORT INFORMATION
  Report Type: Report from Study
  Country: US (occurrence: US)
  Receive Date: 20250605
  Receipt Date: 20250605
  Transmission Date: 20250717
  Serious: Yes (Other)
  Sender: ABBVIE
  Company Number: US-ABBVIE-6303104

PATIENT
  Age: 61 Year
  Sex: Female

DRUGS (1)
  1. RINVOQ [Suspect]
     Active Substance: UPADACITINIB
     Indication: Rheumatoid arthritis
     Route: 048
     Dates: start: 20230612

REACTIONS (3)
  - Medical device implantation [Recovering/Resolving]
  - Device related infection [Recovering/Resolving]
  - Breast mass [Recovered/Resolved]

NARRATIVE: CASE EVENT DATE: 20250526
